FAERS Safety Report 19815428 (Version 1)
Quarter: 2021Q3

REPORT INFORMATION
  Report Type: Spontaneous
  Country: US (occurrence: US)
  Receive Date: 20210910
  Receipt Date: 20210910
  Transmission Date: 20211014
  Serious: No
  Sender: FDA-Public Use
  Company Number: None

PATIENT
  Age: 80 Year
  Sex: Male
  Weight: 60.75 kg

DRUGS (9)
  1. ASPIRIN 81MG [Concomitant]
     Active Substance: ASPIRIN
  2. LAMIGAN [Concomitant]
  3. TESTOSTERONE GEL [Concomitant]
     Active Substance: TESTOSTERONE
  4. MULTIVITAMIN [Concomitant]
     Active Substance: VITAMINS
  5. VITAMIN D3 [Concomitant]
     Active Substance: CHOLECALCIFEROL
  6. LOSARTAN. [Concomitant]
     Active Substance: LOSARTAN
  7. DORZOLAMIDE [Concomitant]
     Active Substance: DORZOLAMIDE
  8. TIMOLOL MALEATE OPTHALMIC SOLUTION, USP 0.25% [Suspect]
     Active Substance: TIMOLOL MALEATE
     Indication: OPEN ANGLE GLAUCOMA
     Dosage: ?          QUANTITY:1 DROP(S);?
     Route: 047
     Dates: start: 20210526, end: 20210908
  9. ATORVASTATIN [Concomitant]
     Active Substance: ATORVASTATIN

REACTIONS (1)
  - Tinnitus [None]

NARRATIVE: CASE EVENT DATE: 20210801
